FAERS Safety Report 10015958 (Version 2)
Quarter: 2014Q1

REPORT INFORMATION
  Report Type: Spontaneous
  Country: KR (occurrence: KR)
  Receive Date: 20140317
  Receipt Date: 20140317
  Transmission Date: 20141002
  Serious: Yes (Other)
  Sender: FDA-Public Use
  Company Number: KR-BAXTER-2012BAX011186

PATIENT
  Age: 40 Year
  Sex: Female
  Weight: 75 kg

DRUGS (7)
  1. EXTRANEAL [Suspect]
     Indication: PERITONEAL DIALYSIS
     Route: 033
     Dates: start: 20060614
  2. EXTRANEAL [Suspect]
     Indication: RENAL FAILURE CHRONIC
  3. PHYSIONEAL 2.5% [Suspect]
     Indication: RENAL FAILURE CHRONIC
     Route: 033
     Dates: start: 20060614
  4. DIAMICRON [Concomitant]
     Indication: DIABETES MELLITUS
     Route: 048
  5. FEROBA [Concomitant]
     Indication: RENAL FAILURE CHRONIC
     Route: 048
  6. SIMVASTAR [Concomitant]
     Indication: HYPERLIPIDAEMIA
     Route: 048
  7. ADALAT OROS [Concomitant]
     Indication: HYPERTENSION
     Route: 048

REACTIONS (1)
  - Hypoglycaemia [Recovered/Resolved]
